FAERS Safety Report 4418092-2 (Version None)
Quarter: 2004Q3

REPORT INFORMATION
  Report Type: 
  Country: None (occurrence: None)
  Receive Date: 20040803
  Receipt Date: 20040721
  Transmission Date: 20050211
  Serious: Yes (Hospitalization)
  Sender: FDA-Public Use
  Company Number: US-JNJFOC-20040706342

PATIENT
  Age: 64 Year
  Sex: Female
  Weight: 66.2252 kg

DRUGS (11)
  1. REMICADE [Suspect]
     Indication: RHEUMATOID ARTHRITIS
     Dosage: 500-600 MG
     Dates: start: 20020101
  2. REMICADE [Suspect]
     Indication: RHEUMATOID ARTHRITIS
     Dosage: 500-600 MG
     Dates: start: 20040512
  3. COUMADIN [Concomitant]
  4. ZESTRIL [Concomitant]
  5. GLUCOPHAGE [Concomitant]
  6. GLYUBURIDE (GLIBENCLAMIDE) [Concomitant]
  7. PREDNISONE [Concomitant]
  8. INSULIN [Concomitant]
  9. LOPRESSOR [Concomitant]
  10. ACETYLSALICYLIC ACID SRT [Concomitant]
  11. XANAX [Concomitant]

REACTIONS (1)
  - CORONARY ARTERY OCCLUSION [None]
